FAERS Safety Report 23415728 (Version 1)
Quarter: 2024Q1

REPORT INFORMATION
  Report Type: Spontaneous
  Country: US (occurrence: None)
  Receive Date: 20240117
  Receipt Date: 20240117
  Transmission Date: 20240409
  Serious: Yes (Hospitalization)
  Sender: FDA-Public Use
  Company Number: None

PATIENT
  Sex: Female

DRUGS (3)
  1. ADCIRCA [Suspect]
     Active Substance: TADALAFIL
     Indication: Pulmonary arterial hypertension
     Dosage: 40MG DAILY ORAL
     Route: 048
     Dates: start: 202105
  2. OPSUMIT [Concomitant]
     Active Substance: MACITENTAN
  3. TYVASO DPI MAINT KIT [Concomitant]

REACTIONS (3)
  - Insurance issue [None]
  - Therapy interrupted [None]
  - Condition aggravated [None]
